FAERS Safety Report 21112779 (Version 2)
Quarter: 2022Q3

REPORT INFORMATION
  Report Type: Spontaneous
  Country: GR (occurrence: GR)
  Receive Date: 20220721
  Receipt Date: 20220804
  Transmission Date: 20221026
  Serious: Yes (Hospitalization, Other)
  Sender: FDA-Public Use
  Company Number: GR-PFIZER INC-PV202200018336

PATIENT
  Age: 61 Year
  Sex: Male

DRUGS (2)
  1. PIPERACILLIN SODIUM\TAZOBACTAM SODIUM [Suspect]
     Active Substance: PIPERACILLIN SODIUM\TAZOBACTAM SODIUM
     Dosage: 4.5 G
     Route: 042
  2. RIFAXIMIN [Suspect]
     Active Substance: RIFAXIMIN
     Dosage: 200 MG, 3X/DAY

REACTIONS (3)
  - Cholecystitis acute [Unknown]
  - Jaundice [Unknown]
  - Urticaria [Recovered/Resolved]
